FAERS Safety Report 5897821-5 (Version None)
Quarter: 2008Q3

REPORT INFORMATION
  Report Type: 
  Country: None (occurrence: None)
  Receive Date: 20080924
  Receipt Date: 20080924
  Transmission Date: 20090109
  Serious: Yes (Other)
  Sender: FDA-Public Use
  Company Number: None

PATIENT
  Sex: Male
  Weight: 66.2 kg

DRUGS (1)
  1. OCTREOTIDE ACETATE [Suspect]
     Indication: CHYLOTHORAX
     Dosage: 100 MCG Q8H SQ
     Route: 058
     Dates: start: 20080922, end: 20080922

REACTIONS (4)
  - CHEST PAIN [None]
  - DYSPNOEA [None]
  - EXTRASYSTOLES [None]
  - VENTRICULAR TACHYCARDIA [None]
